FAERS Safety Report 15372476 (Version 1)
Quarter: 2018Q4

REPORT INFORMATION
  Report Type: Spontaneous
  Country: FR (occurrence: FR)
  Receive Date: 20180912
  Receipt Date: 20180912
  Transmission Date: 20190204
  Serious: Yes (Other)
  Sender: FDA-Public Use
  Company Number: PHHY2018FR089541

PATIENT
  Age: 3 Year
  Sex: Male
  Weight: 16 kg

DRUGS (5)
  1. DIAZEPAM. [Suspect]
     Active Substance: DIAZEPAM
     Indication: ANAESTHESIA
     Dosage: 8 MG, ONCE/SINGLE
     Route: 054
  2. CELOCURINE [Suspect]
     Active Substance: SUCCINYLCHOLINE
     Indication: ENDOTRACHEAL INTUBATION
     Dosage: 15 MG, ONCE/SINGLE
     Route: 042
  3. HALOTHANE. [Suspect]
     Active Substance: HALOTHANE
     Indication: ANAESTHESIA
     Dosage: 4 %, TRANSPORTED WITH 50/50 MIX OF 02 AND N20
     Route: 055
  4. ATROPINE SULFATE. [Suspect]
     Active Substance: ATROPINE SULFATE
     Indication: ANAESTHESIA
     Dosage: 0.25 MG, ONCE/SINGLE
     Route: 060
  5. THIOPENTAL [Suspect]
     Active Substance: THIOPENTAL
     Indication: ANAESTHESIA
     Dosage: 100 MG, ONCE/SINGLE
     Route: 065

REACTIONS (1)
  - Cardiac arrest [Recovered/Resolved]
